FAERS Safety Report 7434323 (Version 2)
Quarter: 2012Q4

REPORT INFORMATION
  Report Type: 
  Country: US (occurrence: US)
  Receive Date: 20100624
  Receipt Date: 20121018
  Transmission Date: 20130627
  Serious: Yes (Disabling, Other)
  Sender: FDA-Public Use
  Company Number: US-PFIZER INC-2008066990

PATIENT
  Age: 54 Year
  Sex: Female
  Weight: 61.7 kg

DRUGS (13)
  1. PROVERA [Suspect]
     Indication: HORMONE REPLACEMENT THERAPY
     Dosage: 2.5 mg,  5 mg , 10 mg
     Route: 048
     Dates: start: 1997, end: 2000
  2. PREMARIN [Suspect]
     Indication: HORMONE REPLACEMENT THERAPY
     Dosage: 0.625 mg
     Route: 048
     Dates: start: 1998, end: 1998
  3. MEDROXYPROGESTERONE ACETATE [Suspect]
     Indication: HORMONE REPLACEMENT THERAPY
     Dosage: UNK
     Route: 048
     Dates: start: 1997, end: 1997
  4. MEDROXYPROGESTERONE ACETATE [Suspect]
     Dosage: 2.5 mg, 5mg and 10 mg
     Route: 048
     Dates: start: 1997, end: 2000
  5. CYCRIN [Suspect]
     Indication: HORMONE REPLACEMENT THERAPY
     Dosage: UNK
     Route: 048
  6. ESTRACE [Suspect]
     Indication: HORMONE REPLACEMENT THERAPY
     Dosage: 1 mg and 2 mg
     Route: 048
     Dates: start: 1997, end: 1997
  7. ESTRACE [Suspect]
     Dosage: 1 mg and 2 mg
     Route: 048
     Dates: start: 1999, end: 1999
  8. ESTRADIOL [Suspect]
     Indication: HORMONE REPLACEMENT THERAPY
     Dosage: UNK
     Route: 048
     Dates: start: 1997, end: 1997
  9. ESTRADIOL [Suspect]
     Dosage: 1 mg and 2 mg
     Route: 048
     Dates: start: 1997, end: 2002
  10. ESTRATEST [Suspect]
     Indication: HORMONE REPLACEMENT THERAPY
     Dosage: UNK
     Route: 048
     Dates: start: 2001, end: 2002
  11. ESTRATEST [Suspect]
     Indication: MENOPAUSAL SYMPTOMS
  12. METOPROLOL [Concomitant]
     Indication: BLOOD PRESSURE
     Dosage: UNK
     Dates: start: 1996
  13. FOSINOPRIL [Concomitant]
     Indication: MENOPAUSAL SYMPTOMS
     Dosage: UNK
     Dates: start: 1996

REACTIONS (1)
  - Breast cancer female [Unknown]
